FAERS Safety Report 7706463-8 (Version None)
Quarter: 2011Q3

REPORT INFORMATION
  Report Type: 
  Country: None (occurrence: None)
  Receive Date: 20110824
  Receipt Date: 20110816
  Transmission Date: 20111222
  Serious: Yes (Hospitalization)
  Sender: FDA-Public Use
  Company Number: CA-JNJFOC-20110604286

PATIENT
  Sex: Female
  Weight: 53.2 kg

DRUGS (2)
  1. REMICADE [Suspect]
     Route: 042
     Dates: start: 20070823
  2. REMICADE [Suspect]
     Indication: CROHN'S DISEASE
     Dosage: MOST RECENT DOSE
     Route: 042
     Dates: start: 20110607

REACTIONS (2)
  - HOSPITALISATION [None]
  - PANCREATITIS [None]
